FAERS Safety Report 9346930 (Version 1)
Quarter: 2013Q2

REPORT INFORMATION
  Report Type: Spontaneous
  Country: GB (occurrence: GB)
  Receive Date: 20130613
  Receipt Date: 20130613
  Transmission Date: 20140414
  Serious: Yes (Other)
  Sender: FDA-Public Use
  Company Number: GB-PFIZER INC-2013176136

PATIENT
  Age: 75 Year
  Sex: Male
  Weight: 79 kg

DRUGS (7)
  1. ATORVASTATIN [Suspect]
     Indication: ACUTE MYOCARDIAL INFARCTION
     Dosage: 80 MG, IN AFTERNOON
     Route: 048
     Dates: start: 20121019, end: 20130530
  2. ATORVASTATIN [Suspect]
     Dosage: 40 MG, UNK
  3. TICAGRELOR [Suspect]
     Indication: ACUTE MYOCARDIAL INFARCTION
     Dosage: 90 MG, 2X/DAY
     Route: 048
     Dates: start: 20121019, end: 20130530
  4. ASPIRIN [Concomitant]
     Dosage: 75 MG, UNK
  5. ZOTON [Concomitant]
     Dosage: 15 MG, UNK
  6. RAMIPRIL [Concomitant]
     Dosage: 5 MG, UNK
  7. BISOPROLOL [Concomitant]
     Dosage: 2.5 MG, UNK

REACTIONS (1)
  - Abdominal pain upper [Recovered/Resolved]
